FAERS Safety Report 5810034-8 (Version None)
Quarter: 2008Q3

REPORT INFORMATION
  Report Type: 
  Country: None (occurrence: None)
  Receive Date: 20080715
  Receipt Date: 20080709
  Transmission Date: 20090109
  Serious: Yes (Other)
  Sender: FDA-Public Use
  Company Number: A0735420A

PATIENT
  Age: 75 Year
  Sex: Female

DRUGS (9)
  1. PAZOPANIB [Suspect]
     Route: 048
     Dates: start: 20070822
  2. LAPATINIB [Suspect]
     Dosage: 1000MG PER DAY
     Route: 048
     Dates: start: 20070822
  3. SIMVASTATIN [Concomitant]
     Route: 048
     Dates: start: 20080618
  4. OSMO-ADALAT [Concomitant]
     Indication: HYPERTENSION
     Route: 048
     Dates: start: 19990420
  5. DISOTHIAZIDE [Concomitant]
     Indication: HYPERTENSION
     Route: 048
     Dates: start: 20010111
  6. COSOPT [Concomitant]
     Indication: GLAUCOMA
     Route: 047
     Dates: start: 20020612
  7. AGIOLAX [Concomitant]
     Indication: CONSTIPATION
     Route: 048
     Dates: start: 20070823, end: 20070823
  8. OMEPRAZOLE [Concomitant]
     Route: 048
     Dates: start: 20040119
  9. TRAVATAN [Concomitant]
     Indication: GLAUCOMA
     Route: 047
     Dates: start: 20050607

REACTIONS (6)
  - ALANINE AMINOTRANSFERASE INCREASED [None]
  - ASPARTATE AMINOTRANSFERASE INCREASED [None]
  - BLOOD ALKALINE PHOSPHATASE INCREASED [None]
  - BLOOD BILIRUBIN INCREASED [None]
  - HEPATOTOXICITY [None]
  - LIVER FUNCTION TEST ABNORMAL [None]
